FAERS Safety Report 17031929 (Version 3)
Quarter: 2020Q2

REPORT INFORMATION
  Report Type: Report from Study
  Country: US (occurrence: US)
  Receive Date: 20191114
  Receipt Date: 20200410
  Transmission Date: 20200713
  Serious: Yes (Other)
  Sender: FDA-Public Use
  Company Number: US-ROCHE-2466640

PATIENT
  Age: 46 Year
  Sex: Female
  Weight: 108.96 kg

DRUGS (7)
  1. BENZONATATE. [Concomitant]
     Active Substance: BENZONATATE
     Route: 048
  2. OCREVUS [Suspect]
     Active Substance: OCRELIZUMAB
     Indication: RELAPSING-REMITTING MULTIPLE SCLEROSIS
     Dosage: MOST RECENT DOSE OF OCRELIZUMAB: FEB/2018, 25/JUL/2018, 08/AUG/2018, 19/AUG/2019
     Route: 065
     Dates: start: 20170817
  3. ZYRTEC [Concomitant]
     Active Substance: CETIRIZINE HYDROCHLORIDE
     Route: 048
  4. AZELASTINE. [Concomitant]
     Active Substance: AZELASTINE HYDROCHLORIDE
     Dosage: 137 MCG/INH SPRAY
     Route: 065
  5. FLONASE [Concomitant]
     Active Substance: FLUTICASONE PROPIONATE
     Dosage: 50 MCG/INH SPRAY, PRN
     Route: 065
  6. DEXTROAMPHETAMINE [DEXAMFETAMINE] [Concomitant]
     Active Substance: DEXTROAMPHETAMINE
     Route: 048
  7. ADDERALL [Concomitant]
     Active Substance: AMPHETAMINE ASPARTATE\AMPHETAMINE SULFATE\DEXTROAMPHETAMINE SACCHARATE\DEXTROAMPHETAMINE SULFATE

REACTIONS (7)
  - Intentional product use issue [Unknown]
  - Fatigue [Unknown]
  - Off label use [Unknown]
  - Malaise [Recovered/Resolved with Sequelae]
  - Pharyngitis streptococcal [Unknown]
  - Mastoiditis [Recovered/Resolved with Sequelae]
  - Cough [Unknown]

NARRATIVE: CASE EVENT DATE: 201811
